FAERS Safety Report 17073441 (Version 9)
Quarter: 2020Q4

REPORT INFORMATION
  Report Type: Spontaneous
  Country: CZ (occurrence: CZ)
  Receive Date: 20191126
  Receipt Date: 20201022
  Transmission Date: 20210113
  Serious: Yes (Hospitalization, Other)
  Sender: FDA-Public Use
  Company Number: CZ-AUROBINDO-AUR-APL-2019-074259

PATIENT
  Age: 67 Year
  Sex: Female
  Weight: 78 kg

DRUGS (20)
  1. KOFFEIN [Concomitant]
     Indication: CENTRAL NERVOUS SYSTEM STIMULATION
     Dosage: UNK
     Route: 065
  2. INSULIN [Concomitant]
     Active Substance: INSULIN NOS
     Indication: DIABETES MELLITUS
     Dosage: UNK
     Route: 065
  3. ZOLPIDEM FILM COATED TABLETS [Suspect]
     Active Substance: ZOLPIDEM TARTRATE
     Indication: ANXIETY
     Dosage: 20 MILLIGRAM, ONCE A DAY
     Route: 048
  4. PARACETAMOL [Concomitant]
     Active Substance: ACETAMINOPHEN
     Indication: ANALGESIC THERAPY
     Dosage: UNK
     Route: 065
  5. METFORMIN [Concomitant]
     Active Substance: METFORMIN HYDROCHLORIDE
     Indication: TYPE 2 DIABETES MELLITUS
  6. PARACETAMOL [Concomitant]
     Active Substance: ACETAMINOPHEN
     Indication: PAIN
  7. GUAIFENESIN. [Concomitant]
     Active Substance: GUAIFENESIN
     Indication: PRODUCTIVE COUGH
     Dosage: UNK
     Route: 065
  8. GUAIFENESIN. [Concomitant]
     Active Substance: GUAIFENESIN
     Indication: MUSCLE RELAXANT THERAPY
  9. METFORMIN [Concomitant]
     Active Substance: METFORMIN HYDROCHLORIDE
     Indication: DIABETES MELLITUS
     Dosage: UNK
     Route: 065
  10. ZOLPIDEM FILM COATED TABLETS [Suspect]
     Active Substance: ZOLPIDEM TARTRATE
     Indication: INSOMNIA
     Dosage: 30 MILLIGRAM, ONCE A DAY
     Route: 065
  11. GUAIFENESIN. [Concomitant]
     Active Substance: GUAIFENESIN
     Indication: PAIN
  12. ZOLPIDEM FILM COATED TABLETS [Suspect]
     Active Substance: ZOLPIDEM TARTRATE
     Indication: HYPOSOMNIA
     Dosage: 10 MILLIGRAM, 3 TIMES A DAY
     Route: 048
  13. GUAIFENESIN. [Concomitant]
     Active Substance: GUAIFENESIN
     Indication: ANXIOLYTIC THERAPY
  14. KOFFEIN [Concomitant]
     Indication: BACK PAIN
  15. KOFFEIN [Concomitant]
     Indication: PAIN
  16. INSULIN [Concomitant]
     Active Substance: INSULIN NOS
     Indication: TYPE 2 DIABETES MELLITUS
  17. GUAIFENESIN;PARACETAMOL [Concomitant]
     Indication: PRODUCT USED FOR UNKNOWN INDICATION
     Dosage: UNK
     Route: 065
  18. ZOLPIDEM FILM COATED TABLETS [Suspect]
     Active Substance: ZOLPIDEM TARTRATE
     Indication: ANTIDEPRESSANT THERAPY
     Dosage: 10 MILLIGRAM, ONCE A DAY
     Route: 048
  19. ZOLPIDEM FILM COATED TABLETS [Suspect]
     Active Substance: ZOLPIDEM TARTRATE
     Dosage: 35 MILLIGRAM, ONCE A DAY
     Route: 048
  20. PARACETAMOL [Concomitant]
     Active Substance: ACETAMINOPHEN
     Indication: BACK PAIN
     Dosage: 1-2 TABLETS

REACTIONS (18)
  - Suicidal ideation [Recovered/Resolved]
  - Depressed mood [Recovering/Resolving]
  - Psychomotor skills impaired [Unknown]
  - Psychomotor retardation [Recovered/Resolved]
  - Abulia [Unknown]
  - Depression [Recovered/Resolved]
  - Insomnia [Unknown]
  - Drug ineffective [Unknown]
  - Bulimia nervosa [Unknown]
  - Intentional product use issue [Unknown]
  - Anhedonia [Unknown]
  - Therapeutic product effect incomplete [Unknown]
  - Terminal insomnia [Recovered/Resolved]
  - Therapeutic product effect decreased [Recovered/Resolved]
  - Fatigue [Unknown]
  - Anxiety [Recovered/Resolved]
  - Decreased appetite [Unknown]
  - Intentional product misuse [Unknown]
